FAERS Safety Report 19987888 (Version 1)
Quarter: 2021Q4

REPORT INFORMATION
  Report Type: Spontaneous
  Country: US (occurrence: US)
  Receive Date: 20211023
  Receipt Date: 20211023
  Transmission Date: 20220303
  Serious: No
  Sender: FDA-Public Use
  Company Number: US-ACCORD-208672

PATIENT
  Sex: Female
  Weight: 81.65 kg

DRUGS (1)
  1. SPIRONOLACTONE [Suspect]
     Active Substance: SPIRONOLACTONE
     Indication: Diuretic therapy
     Route: 048
     Dates: start: 201602

REACTIONS (4)
  - Product odour abnormal [Unknown]
  - Poor quality product administered [Unknown]
  - Corrective lens user [Unknown]
  - Incorrect dose administered [Unknown]
